FAERS Safety Report 8511078-8 (Version None)
Quarter: 2012Q3

REPORT INFORMATION
  Report Type: 
  Country: None (occurrence: None)
  Receive Date: 20120705
  Receipt Date: 20120626
  Transmission Date: 20120928
  Serious: Yes (Hospitalization)
  Sender: FDA-Public Use
  Company Number: IMP_05923_2012

PATIENT
  Age: 71 Year
  Sex: Female

DRUGS (5)
  1. PROPAFENONE HCL [Suspect]
     Indication: PRODUCT USED FOR UNKNOWN INDICATION
     Dosage: (225 MG TID)
  2. DIGOXIN [Suspect]
     Indication: PRODUCT USED FOR UNKNOWN INDICATION
     Dosage: (0.125 MG, DAILY)
  3. PROPAFENONE HCL [Concomitant]
  4. METOPROLOL SUCCINATE [Suspect]
     Indication: PRODUCT USED FOR UNKNOWN INDICATION
     Dosage: (75 BID) ; (100 MG BID)
  5. METOPROLOL SUCCINATE [Concomitant]

REACTIONS (8)
  - BRADYCARDIA [None]
  - RENAL FAILURE ACUTE [None]
  - PALPITATIONS [None]
  - UNRESPONSIVE TO STIMULI [None]
  - CARDIAC PACEMAKER INSERTION [None]
  - ATRIOVENTRICULAR BLOCK [None]
  - CHRONIC OBSTRUCTIVE PULMONARY DISEASE [None]
  - CONDITION AGGRAVATED [None]
